FAERS Safety Report 4310179-8 (Version None)
Quarter: 2004Q1

REPORT INFORMATION
  Report Type: 
  Country: None (occurrence: None)
  Receive Date: 20040302
  Receipt Date: 20040302
  Transmission Date: 20041129
  Serious: No
  Sender: FDA-Public Use
  Company Number: None

PATIENT
  Age: 74 Year
  Sex: Male
  Weight: 114 kg

DRUGS (7)
  1. ALPROSTADIL [Suspect]
     Indication: ERECTILE DYSFUNCTION
     Dosage: 500 MG ONCE INSIDE URETHRA (PENIS)
     Dates: start: 20040122
  2. VERAPAMIL [Concomitant]
  3. HCTZ 25 MG/TRIAMTERENE [Concomitant]
  4. DILTIAZEM [Concomitant]
  5. TAMSULOSIN [Concomitant]
  6. ASPIRIN [Concomitant]
  7. ETODOLAC [Concomitant]

REACTIONS (5)
  - DYSURIA [None]
  - ECCHYMOSIS [None]
  - ERECTILE DYSFUNCTION [None]
  - PENILE SWELLING [None]
  - PRIAPISM [None]
